FAERS Safety Report 16539381 (Version 1)
Quarter: 2019Q3

REPORT INFORMATION
  Report Type: Other
  Country: US (occurrence: US)
  Receive Date: 20190708
  Receipt Date: 20190708
  Transmission Date: 20191004
  Serious: Yes (Other)
  Sender: FDA-Public Use
  Company Number: US-FDC LIMITED-2070454

PATIENT
  Age: 19 Year
  Sex: Female

DRUGS (2)
  1. FLUCONAZOLE. [Concomitant]
     Active Substance: FLUCONAZOLE
     Route: 065
  2. CIPROFLOXACIN. [Suspect]
     Active Substance: CIPROFLOXACIN
     Indication: VAGINAL INFECTION
     Route: 065

REACTIONS (1)
  - Stevens-Johnson syndrome [Recovering/Resolving]
